FAERS Safety Report 6670111-9 (Version None)
Quarter: 2010Q2

REPORT INFORMATION
  Report Type: 
  Country: None (occurrence: None)
  Receive Date: 20100406
  Receipt Date: 20100219
  Transmission Date: 20101027
  Serious: No
  Sender: FDA-Public Use
  Company Number: US-ALLERGAN-1002188US

PATIENT
  Age: 49 Year
  Sex: Female

DRUGS (2)
  1. LATISSE [Suspect]
     Indication: GROWTH OF EYELASHES
     Dosage: 1 GTT, QHS
     Route: 061
     Dates: start: 20090801, end: 20091001
  2. LATISSE [Suspect]
     Dosage: 1 GTT, QOD
     Route: 061
     Dates: start: 20091001, end: 20100205

REACTIONS (2)
  - PIGMENTATION DISORDER [None]
  - WRONG TECHNIQUE IN DRUG USAGE PROCESS [None]
